FAERS Safety Report 5049449-7 (Version None)
Quarter: 2006Q3

REPORT INFORMATION
  Report Type: 
  Country: None (occurrence: None)
  Receive Date: 20060711
  Receipt Date: 20060711
  Transmission Date: 20061208
  Serious: Yes (Hospitalization)
  Sender: FDA-Public Use
  Company Number: None

PATIENT
  Age: 42 Year
  Sex: Female
  Weight: 60.782 kg

DRUGS (5)
  1. ADRIAMYCIN PFS [Suspect]
     Indication: SYNOVIAL SARCOMA
     Dosage: 60 MG/M2
     Dates: start: 20060622, end: 20060624
  2. IFOSFAMIDE [Suspect]
     Dosage: 2.5 MG/M2
     Dates: start: 20060622, end: 20060624
  3. DEXAMETHASONE TAB [Concomitant]
  4. KYTRIL [Concomitant]
  5. COMPAZINE [Concomitant]

REACTIONS (5)
  - ANAEMIA [None]
  - APHTHOUS STOMATITIS [None]
  - NEUTROPENIA [None]
  - ORAL PAIN [None]
  - PYREXIA [None]
